FAERS Safety Report 16665893 (Version 1)
Quarter: 2019Q3

REPORT INFORMATION
  Report Type: Spontaneous
  Country: US (occurrence: US)
  Receive Date: 20190804
  Receipt Date: 20190804
  Transmission Date: 20191004
  Serious: No
  Sender: FDA-Public Use
  Company Number: US-ABBVIE-19S-163-2763471-00

PATIENT
  Age: 77 Year
  Sex: Female

DRUGS (2)
  1. DEPAKOTE ER [Suspect]
     Active Substance: DIVALPROEX SODIUM
     Indication: BIPOLAR DISORDER
     Dosage: 500 MG IN AM??1000 MG IN PM
     Route: 048
  2. DEPAKOTE [Suspect]
     Active Substance: DIVALPROEX SODIUM
     Indication: BIPOLAR DISORDER
     Route: 048

REACTIONS (8)
  - Restlessness [Not Recovered/Not Resolved]
  - Vascular dementia [Unknown]
  - Dementia [Not Recovered/Not Resolved]
  - Poor quality sleep [Not Recovered/Not Resolved]
  - Mood altered [Not Recovered/Not Resolved]
  - Product use complaint [Not Recovered/Not Resolved]
  - Weight decreased [Not Recovered/Not Resolved]
  - Mania [Not Recovered/Not Resolved]
